FAERS Safety Report 17294413 (Version 1)
Quarter: 2020Q1

REPORT INFORMATION
  Report Type: Spontaneous
  Country: US (occurrence: US)
  Receive Date: 20200121
  Receipt Date: 20200121
  Transmission Date: 20200409
  Serious: Yes (Hospitalization, Other)
  Sender: FDA-Public Use
  Company Number: US-TARO-2020TAR00025

PATIENT
  Age: 58 Year
  Sex: Female

DRUGS (5)
  1. LIDOCAINE. [Suspect]
     Active Substance: LIDOCAINE
     Indication: ENDOTRACHEAL INTUBATION
     Dosage: 14 MILLILITER
     Route: 061
  2. FENTANYL. [Suspect]
     Active Substance: FENTANYL
     Indication: SEDATION
     Dosage: 75 MICROGRAM (GIVEN OVER 10 MINUTES)
     Route: 065
  3. DIPHENHYDRAMINE. [Suspect]
     Active Substance: DIPHENHYDRAMINE
     Indication: SEDATION
     Dosage: 25 MILLIGRAM  (GIVEN OVER 10 MINUTES)
     Route: 065
  4. MIDAZOLAM HYDROCHLORIDE. [Suspect]
     Active Substance: MIDAZOLAM HYDROCHLORIDE
     Indication: SEDATION
     Dosage: 3 MILLIGRAM (GIVEN OVER 10 MINUTES)
     Route: 065
  5. LIDOCAINE. [Suspect]
     Active Substance: LIDOCAINE
     Indication: ENDOTRACHEAL INTUBATION
     Dosage: UNK, (NEBULIZED)
     Route: 065

REACTIONS (7)
  - Pulmonary oedema [Recovering/Resolving]
  - Oliguria [Recovering/Resolving]
  - Cardiac arrest [Recovered/Resolved]
  - Respiratory failure [Recovering/Resolving]
  - Generalised tonic-clonic seizure [Recovered/Resolved]
  - Shock [Recovering/Resolving]
  - Pulseless electrical activity [Recovered/Resolved]
